FAERS Safety Report 21237059 (Version 1)
Quarter: 2022Q3

REPORT INFORMATION
  Report Type: Report from Study
  Country: US (occurrence: US)
  Receive Date: 20220822
  Receipt Date: 20220822
  Transmission Date: 20221027
  Serious: Yes (Hospitalization)
  Sender: FDA-Public Use
  Company Number: US-BAUSCH-BL-2022-020266

PATIENT
  Age: 74 Year
  Sex: Female

DRUGS (1)
  1. XIFAXAN [Suspect]
     Active Substance: RIFAXIMIN
     Indication: Product used for unknown indication
     Dosage: 14 DAYS SUPPLY
     Route: 048
     Dates: start: 20220802

REACTIONS (2)
  - Hepatic cirrhosis [Unknown]
  - Drainage [Unknown]
